FAERS Safety Report 11307182 (Version 14)
Quarter: 2021Q4

REPORT INFORMATION
  Report Type: Report from Study
  Country: PA (occurrence: PA)
  Receive Date: 20150723
  Receipt Date: 20211202
  Transmission Date: 20220303
  Serious: Yes (Other)
  Sender: FDA-Public Use
  Company Number: PHHY2015PA050257

PATIENT
  Sex: Female
  Weight: 82.993 kg

DRUGS (3)
  1. GILENYA [Suspect]
     Active Substance: FINGOLIMOD HYDROCHLORIDE
     Indication: Multiple sclerosis
     Dosage: 0.5 MG, QD (SINCE ABOUT 6 YEARS AGO)
     Route: 048
     Dates: start: 20150423
  2. LAMOTRIGINE [Concomitant]
     Active Substance: LAMOTRIGINE
     Indication: Seizure
     Dosage: 3 DF, QD
     Route: 065
  3. LAMOTRIGINE [Concomitant]
     Active Substance: LAMOTRIGINE
     Dosage: 100 MG, TID
     Route: 065

REACTIONS (28)
  - Somnolence [Not Recovered/Not Resolved]
  - Cyst [Unknown]
  - Obesity [Unknown]
  - Head injury [Unknown]
  - Urinary incontinence [Not Recovered/Not Resolved]
  - Skin discolouration [Not Recovered/Not Resolved]
  - Flatulence [Unknown]
  - Gastritis [Unknown]
  - Malaise [Unknown]
  - Fatigue [Not Recovered/Not Resolved]
  - Headache [Not Recovered/Not Resolved]
  - Back pain [Not Recovered/Not Resolved]
  - Tunnel vision [Unknown]
  - Radicular pain [Unknown]
  - Musculoskeletal discomfort [Unknown]
  - Eye pain [Recovering/Resolving]
  - Ocular hyperaemia [Unknown]
  - Presbyopia [Unknown]
  - Vomiting [Unknown]
  - Abdominal discomfort [Unknown]
  - Sleep disorder [Unknown]
  - Visual impairment [Unknown]
  - Abdominal distension [Unknown]
  - Vision blurred [Unknown]
  - Blood pressure increased [Unknown]
  - Bradycardia [Unknown]
  - Product availability issue [Unknown]
  - Anxiety [Unknown]
